FAERS Safety Report 6239616-9 (Version None)
Quarter: 2009Q2

REPORT INFORMATION
  Report Type: 
  Country: None (occurrence: None)
  Receive Date: 20090619
  Receipt Date: 20090608
  Transmission Date: 20091009
  Serious: Yes (Death, Other)
  Sender: FDA-Public Use
  Company Number: 2008-04866

PATIENT
  Age: 65 Year
  Sex: Female
  Weight: 63 kg

DRUGS (16)
  1. VELCADE [Suspect]
     Indication: MULTIPLE MYELOMA
     Dosage: 2.1 MG, UNK, INTRAVENOUS
     Route: 042
     Dates: start: 20071127, end: 20071229
  2. LAXOBERON(SODIUM PICOSULFATE) [Suspect]
     Indication: DRUG USE FOR UNKNOWN INDICATION
     Dosage: UNK, UNK, ORAL
     Route: 048
  3. DEXAMETHASONE [Concomitant]
  4. ANAFRANIL [Concomitant]
  5. ZANTAC 150 [Concomitant]
  6. ASPIRIN [Concomitant]
  7. SELBEX (TEPRENONE) [Concomitant]
  8. ALLOPURINOL [Concomitant]
  9. SULFAMETHOXAZOLE AND TRIMETHOPRIM [Concomitant]
  10. DIFLUCAN [Concomitant]
  11. LENDORM [Concomitant]
  12. MAGNESIUM OXIDE (MAGNESIUM OXIDE) [Concomitant]
  13. MORPHINE [Concomitant]
  14. FENTANYL-100 [Concomitant]
  15. LOXONIN (LOXOPROFEN SODIUM) [Concomitant]
  16. PURSENNID (SENNA LEAF) [Concomitant]

REACTIONS (5)
  - HERPES ZOSTER [None]
  - HYPOAESTHESIA [None]
  - NEOPLASM PROGRESSION [None]
  - PAIN [None]
  - PLATELET COUNT DECREASED [None]
